FAERS Safety Report 18677437 (Version 2)
Quarter: 2023Q1

REPORT INFORMATION
  Report Type: Spontaneous
  Country: TW (occurrence: TW)
  Receive Date: 20201229
  Receipt Date: 20230203
  Transmission Date: 20230418
  Serious: Yes (Death, Hospitalization, Other)
  Sender: FDA-Public Use
  Company Number: TW-MYLANLABS-2020M1105657

PATIENT
  Age: 58 Year
  Sex: Female

DRUGS (12)
  1. CLOZAPINE [Suspect]
     Active Substance: CLOZAPINE
     Indication: Schizoaffective disorder
     Dosage: 200-300 MILLIGRAM, QD
  2. CLOZAPINE [Suspect]
     Active Substance: CLOZAPINE
     Dosage: 275 MILLIGRAM, QD
  3. RISPERIDONE [Concomitant]
     Active Substance: RISPERIDONE
     Indication: Psychotic symptom
  4. OLANZAPINE [Concomitant]
     Active Substance: OLANZAPINE
     Indication: Psychotic symptom
  5. CHLORPROMAZINE [Concomitant]
     Active Substance: CHLORPROMAZINE
     Indication: Persecutory delusion
     Dosage: 200 MILLIGRAM
  6. CHLORPROMAZINE [Concomitant]
     Active Substance: CHLORPROMAZINE
     Indication: Somatic symptom disorder
  7. VALPROATE SODIUM [Concomitant]
     Active Substance: VALPROATE SODIUM
     Indication: Persecutory delusion
     Dosage: 500-700 MG
  8. VALPROATE SODIUM [Concomitant]
     Active Substance: VALPROATE SODIUM
     Indication: Somatic symptom disorder
  9. BIPERIDEN [Concomitant]
     Active Substance: BIPERIDEN
     Indication: Persecutory delusion
     Dosage: 2 MILLIGRAM
  10. BIPERIDEN [Concomitant]
     Active Substance: BIPERIDEN
     Indication: Somatic symptom disorder
  11. SENNOSIDES A AND B [Concomitant]
     Active Substance: SENNOSIDES A AND B
     Indication: Constipation prophylaxis
  12. MAGNESIUM [Concomitant]
     Active Substance: MAGNESIUM
     Indication: Constipation prophylaxis

REACTIONS (9)
  - Septic shock [Fatal]
  - Intestinal infarction [Fatal]
  - Dyschezia [Unknown]
  - Hypoxia [Unknown]
  - Abdominal pain upper [Unknown]
  - Fatigue [Unknown]
  - Decreased appetite [Unknown]
  - Hypotension [Unknown]
  - Tachycardia [Unknown]
